FAERS Safety Report 8843164 (Version 1)
Quarter: 2012Q4

REPORT INFORMATION
  Report Type: 
  Country: DE (occurrence: DE)
  Receive Date: 20121016
  Receipt Date: 20121016
  Transmission Date: 20130627
  Serious: Yes (Hospitalization)
  Sender: FDA-Public Use
  Company Number: DE-PFIZER INC-2012253064

PATIENT
  Sex: Female
  Weight: 71 kg

DRUGS (7)
  1. GENOTROPIN [Suspect]
     Indication: HYPOPITUITARISM
     Dosage: 0.6 mg, 1x/day, 7injections/week
     Route: 058
     Dates: start: 20031217
  2. EUTHYROX [Concomitant]
     Indication: HYPOTHYROIDISM
     Dosage: UNK
     Dates: start: 20010601
  3. KLIOGEST [Concomitant]
     Indication: BLOOD LUTEINISING HORMONE DECREASED
     Dosage: UNK
     Dates: start: 20010601
  4. KLIOGEST [Concomitant]
     Indication: BLOOD FOLLICLE STIMULATING HORMONE DECREASED
  5. KLIOGEST [Concomitant]
     Indication: HYPOGONADISM FEMALE
  6. ATORVASTATIN [Concomitant]
     Indication: HYPERCHOLESTEROLAEMIA
     Dosage: UNK
     Dates: start: 20030115
  7. QUENSYL [Concomitant]
     Dosage: UNK
     Dates: start: 20050825

REACTIONS (1)
  - Biliary tract disorder [Unknown]
